FAERS Safety Report 24313964 (Version 1)
Quarter: 2024Q3

REPORT INFORMATION
  Report Type: Other
  Country: US (occurrence: US)
  Receive Date: 20240912
  Receipt Date: 20240912
  Transmission Date: 20241016
  Serious: No
  Sender: SIGMA TAU
  Company Number: US-LEADIANT BIOSCIENCES, INC.-2024STPI000014

PATIENT
  Sex: Male

DRUGS (1)
  1. MATULANE [Suspect]
     Active Substance: PROCARBAZINE HYDROCHLORIDE
     Indication: Brain neoplasm malignant
     Dosage: 50 MILLIGRAMS, 2 CAPSULES (100 MG TOTAL) EVERY NIGHT ON DAYS 8-21 OF EVERY 42-DAY CHEMOTHERAPY CYCLE
     Route: 048
     Dates: start: 20230825

REACTIONS (3)
  - Joint range of motion decreased [Unknown]
  - Depression [Unknown]
  - Infected dermal cyst [Recovering/Resolving]
